FAERS Safety Report 4302562-1 (Version None)
Quarter: 2004Q1

REPORT INFORMATION
  Report Type: 
  Country: None (occurrence: None)
  Receive Date: 20040220
  Receipt Date: 20040210
  Transmission Date: 20041129
  Serious: No
  Sender: FDA-Public Use
  Company Number: 04P-013-0249908-00

PATIENT
  Age: 41 Year
  Sex: Female

DRUGS (7)
  1. KALETRA [Suspect]
     Indication: HIV INFECTION
     Dates: start: 20010621
  2. FUZEON [Suspect]
     Indication: HIV INFECTION
     Dosage: 180 MG, 1 IN 1 D, SUBCUTANEOUS
     Route: 058
     Dates: start: 20010621, end: 20010820
  3. AMPRENAVIR [Suspect]
     Indication: HIV INFECTION
     Dates: start: 20010621
  4. EFAVIRENZ [Suspect]
     Indication: HIV INFECTION
     Dates: start: 20010602
  5. ZOVIRAX [Suspect]
     Indication: HIV INFECTION
     Dates: start: 19970715
  6. STAVUDINE [Suspect]
     Indication: HIV INFECTION
     Dates: start: 20010621
  7. ACYCLOVIR [Suspect]
     Indication: HIV INFECTION
     Dates: start: 19970615

REACTIONS (3)
  - ABORTION INDUCED [None]
  - COMPLICATIONS OF MATERNAL EXPOSURE TO THERAPEUTIC DRUGS [None]
  - MATERNAL DRUGS AFFECTING FOETUS [None]
